FAERS Safety Report 7210136-8 (Version None)
Quarter: 2011Q1

REPORT INFORMATION
  Report Type: 
  Country: None (occurrence: None)
  Receive Date: 20110105
  Receipt Date: 20101223
  Transmission Date: 20110831
  Serious: Yes (Hospitalization)
  Sender: FDA-Public Use
  Company Number: FR-ELI_LILLY_AND_COMPANY-FR201009000171

PATIENT
  Sex: Male

DRUGS (6)
  1. ALOPURINOL [Concomitant]
     Indication: GOUT
  2. ZYLORIC [Concomitant]
     Indication: GOUT
     Dosage: UNK, AS NEEDED
  3. COLCHICINE [Concomitant]
     Indication: GOUT
     Dosage: UNK, AS NEEDED
  4. VITAMIN K ANTAGONISTS [Concomitant]
     Indication: ANTICOAGULANT THERAPY
  5. ZYPREXA [Suspect]
     Indication: BIPOLAR DISORDER
     Dosage: 5 MG, DAILY (1/D)
     Route: 048
     Dates: start: 20070101
  6. PAROXETINE [Concomitant]
     Dosage: 20 MG, DAILY (1/D)

REACTIONS (1)
  - PULMONARY EMBOLISM [None]
